FAERS Safety Report 4830628-6 (Version None)
Quarter: 2005Q4

REPORT INFORMATION
  Report Type: 
  Country: None (occurrence: None)
  Receive Date: 20051114
  Receipt Date: 20051027
  Transmission Date: 20060501
  Serious: Yes (Other)
  Sender: FDA-Public Use
  Company Number: 430030N05FRA

PATIENT
  Age: 21 Year
  Sex: Female

DRUGS (3)
  1. MITOXANTRONE [Suspect]
     Indication: MULTIPLE SCLEROSIS
     Dosage: 20 MG 1 IN 1 CYCLE INTRAVENOUS
     Route: 042
     Dates: start: 20050831, end: 20050831
  2. MITOXANTRONE [Suspect]
     Indication: MULTIPLE SCLEROSIS
     Dosage: 20 MG 1 IN 1 CYCLE INTRAVENOUS
     Route: 042
     Dates: start: 20051001
  3. AMANTADINE HCL [Concomitant]

REACTIONS (2)
  - PANCYTOPENIA [None]
  - PYREXIA [None]
